FAERS Safety Report 7285789-9 (Version None)
Quarter: 2011Q1

REPORT INFORMATION
  Report Type: 
  Country: None (occurrence: None)
  Receive Date: 20110210
  Receipt Date: 20110209
  Transmission Date: 20110831
  Serious: Yes (Other)
  Sender: FDA-Public Use
  Company Number: GXKR2011DE00882

PATIENT
  Age: 75 Year
  Sex: Male

DRUGS (2)
  1. ORALPAEDON [Concomitant]
     Dosage: 1 SACHET
     Route: 048
  2. LOPEDIUM AKUT BEI AKUTEM DURCHFALL [Suspect]
     Dosage: ONCE ONLY
     Route: 048

REACTIONS (1)
  - BLOOD GLUCOSE INCREASED [None]
